FAERS Safety Report 5874032-0 (Version None)
Quarter: 2008Q3

REPORT INFORMATION
  Report Type: 
  Country: None (occurrence: None)
  Receive Date: 20080829
  Receipt Date: 20080814
  Transmission Date: 20090109
  Serious: Yes (Death)
  Sender: FDA-Public Use
  Company Number: 2008S1015075

PATIENT
  Age: 82 Year
  Sex: Female

DRUGS (10)
  1. AMIODARONE HCL [Suspect]
     Indication: ATRIAL FIBRILLATION
     Dosage: 200 MG; ORAL
     Route: 048
     Dates: start: 20010101, end: 20080701
  2. NITROFURANTOIN [Suspect]
     Indication: DRUG USE FOR UNKNOWN INDICATION
     Dosage: 50 MG; ORAL
     Route: 048
     Dates: start: 20060101, end: 20080701
  3. DOXYCYLINE HYCLATE [Concomitant]
  4. FUROSEMIDE [Concomitant]
  5. GLYCERYL TRINITRATE (GLYCERYL TRINITRATE) [Concomitant]
  6. LERCANIDIPINE [Concomitant]
  7. LISINOPRIL [Concomitant]
  8. PREDNISONE [Concomitant]
  9. RANITIDINE [Concomitant]
  10. SIMVASTATIN [Concomitant]

REACTIONS (1)
  - PULMONARY FIBROSIS [None]
